FAERS Safety Report 4889661-0 (Version None)
Quarter: 2006Q1

REPORT INFORMATION
  Report Type: 
  Country: None (occurrence: None)
  Receive Date: 20060120
  Receipt Date: 20060111
  Transmission Date: 20060701
  Serious: Yes (Hospitalization)
  Sender: FDA-Public Use
  Company Number: MEDI-0003894

PATIENT
  Age: 6 Month
  Sex: Male
  Weight: 6.3 kg

DRUGS (3)
  1. SYNAGIS [Suspect]
     Indication: ANTIVIRAL PROPHYLAXIS
     Dosage: 0.9 + 0.8 ML, 1 IN 30 D, INTRAMUSCULAR
     Route: 030
     Dates: start: 20050914, end: 20051021
  2. SYNAGIS [Suspect]
     Indication: ANTIVIRAL PROPHYLAXIS
     Dosage: 0.9 + 0.8 ML, 1 IN 30 D, INTRAMUSCULAR
     Route: 030
     Dates: start: 20050914
  3. SYNAGIS [Suspect]
     Indication: ANTIVIRAL PROPHYLAXIS
     Dosage: 0.9 + 0.8 ML, 1 IN 30 D, INTRAMUSCULAR
     Route: 030
     Dates: start: 20051118

REACTIONS (4)
  - BRONCHITIS [None]
  - PETECHIAE [None]
  - RESPIRATORY TRACT INFECTION [None]
  - THROMBOCYTOPENIC PURPURA [None]
